FAERS Safety Report 10025406 (Version 1)
Quarter: 2014Q1

REPORT INFORMATION
  Report Type: Spontaneous
  Country: US (occurrence: US)
  Receive Date: 20140320
  Receipt Date: 20140320
  Transmission Date: 20141002
  Serious: No
  Sender: FDA-Public Use
  Company Number: US-PFIZER INC-2014080357

PATIENT
  Age: 44 Year
  Sex: Female
  Weight: 56.24 kg

DRUGS (3)
  1. EFFEXOR XR [Suspect]
     Indication: ANXIETY
     Dosage: 75 MG, DAILY
     Route: 048
     Dates: start: 201311
  2. EFFEXOR XR [Suspect]
     Dosage: 150 MG, 1X/DAY
  3. EFFEXOR XR [Suspect]
     Dosage: 75 MG, 1X/DAY

REACTIONS (5)
  - Drug intolerance [Unknown]
  - Dizziness [Unknown]
  - Palpitations [Unknown]
  - Heart rate irregular [Unknown]
  - Wrong technique in drug usage process [Unknown]
